FAERS Safety Report 4760257-4 (Version None)
Quarter: 2005Q3

REPORT INFORMATION
  Report Type: 
  Country: None (occurrence: None)
  Receive Date: 20050902
  Receipt Date: 20050819
  Transmission Date: 20060218
  Serious: Yes (Hospitalization, Disabling)
  Sender: FDA-Public Use
  Company Number: CA-ROCHE-414913

PATIENT
  Age: 22 Year
  Sex: Male
  Weight: 76.9 kg

DRUGS (3)
  1. ACCUTANE [Suspect]
     Indication: ACNE
     Route: 048
     Dates: start: 20050323
  2. ACETAMINOPHEN [Concomitant]
     Indication: PAIN
     Dosage: REPORTED AS APO-ACETAMINOPHEN
     Route: 048
     Dates: start: 20050405
  3. CETIRIZINE HCL [Concomitant]
     Dosage: REPORTED AS APO-CETIRIZINE
     Route: 048
     Dates: start: 20050405, end: 20050505

REACTIONS (4)
  - BIPOLAR I DISORDER [None]
  - DISTURBANCE IN ATTENTION [None]
  - RASH PRURITIC [None]
  - THINKING ABNORMAL [None]
